FAERS Safety Report 6197117-0 (Version None)
Quarter: 2009Q2

REPORT INFORMATION
  Report Type: 
  Country: None (occurrence: None)
  Receive Date: 20090520
  Receipt Date: 20090514
  Transmission Date: 20091009
  Serious: Yes (Death)
  Sender: FDA-Public Use
  Company Number: GB-ELI_LILLY_AND_COMPANY-GB200902007338

PATIENT
  Sex: Male
  Weight: 60 kg

DRUGS (10)
  1. XIGRIS [Suspect]
     Indication: SEPTIC SHOCK
     Dosage: FIRST THREE DOSES WERE ADMINITERED AT 20MG RATHER THAN 10 MG ( PATIENT RECEIVED 10MG EXTRA) 20 HRS
     Route: 042
     Dates: start: 20090224
  2. ALFENTANIL [Concomitant]
     Dosage: UNK, UNKNOWN
     Route: 065
     Dates: start: 20090223
  3. MIDAZOLAM HCL [Concomitant]
     Dosage: UNK, UNKNOWN
     Route: 065
     Dates: start: 20090224
  4. NOR-ADRENALIN [Concomitant]
     Dosage: UNK, UNKNOWN
     Route: 065
     Dates: start: 20090223
  5. INSULIN [Concomitant]
     Dosage: UNK, UNKNOWN
     Route: 065
     Dates: start: 20090223
  6. RANITIDINE [Concomitant]
     Dosage: UNK, UNKNOWN
     Route: 065
     Dates: start: 20090223
  7. CLARITHROMYCIN [Concomitant]
     Dosage: UNK, UNKNOWN
     Route: 065
     Dates: start: 20090223
  8. AMOXICILLIN [Concomitant]
     Dosage: UNK, UNKNOWN
     Route: 065
     Dates: start: 20090223
  9. AMIODARONE [Concomitant]
     Indication: ATRIAL FIBRILLATION
     Dosage: UNK, UNKNOWN
     Route: 065
     Dates: start: 20090223
  10. ACETAMINOPHEN [Concomitant]
     Dosage: UNK, UNKNOWN
     Route: 065
     Dates: start: 20090224

REACTIONS (3)
  - ACCIDENTAL OVERDOSE [None]
  - DEATH [None]
  - INCORRECT DOSE ADMINISTERED [None]
